FAERS Safety Report 6388154-1 (Version None)
Quarter: 2009Q4

REPORT INFORMATION
  Report Type: 
  Country: None (occurrence: None)
  Receive Date: 20091001
  Receipt Date: 20091001
  Transmission Date: 20100525
  Serious: No
  Sender: FDA-Public Use
  Company Number: None

PATIENT
  Age: 79 Year
  Sex: Female
  Weight: 90.7194 kg

DRUGS (1)
  1. SIMVASTATIN [Suspect]
     Indication: BLOOD CHOLESTEROL
     Dosage: 20 MG 1 A DAY EVENINGS
     Dates: start: 20090827, end: 20090917

REACTIONS (4)
  - ARTHRALGIA [None]
  - BONE PAIN [None]
  - OEDEMA PERIPHERAL [None]
  - URINE OUTPUT DECREASED [None]
